FAERS Safety Report 8387947-9 (Version None)
Quarter: 2012Q2

REPORT INFORMATION
  Report Type: 
  Country: None (occurrence: None)
  Receive Date: 20120525
  Receipt Date: 20120516
  Transmission Date: 20120825
  Serious: Yes (Hospitalization, Disabling, Other)
  Sender: FDA-Public Use
  Company Number: US-MERCK-1111USA00502

PATIENT
  Age: 53 Year
  Sex: Female

DRUGS (4)
  1. FOSAMAX PLUS D [Suspect]
     Indication: FOOT FRACTURE
     Route: 048
     Dates: start: 20020101, end: 20100101
  2. FOSAMAX [Suspect]
     Indication: OSTEOPOROSIS
     Route: 048
     Dates: start: 20020101, end: 20100101
  3. FOSAMAX PLUS D [Suspect]
     Indication: OSTEOPOROSIS
     Route: 048
     Dates: start: 20020101, end: 20100101
  4. FOSAMAX [Suspect]
     Indication: FOOT FRACTURE
     Route: 048
     Dates: start: 20020101, end: 20100101

REACTIONS (22)
  - EAR INFECTION [None]
  - OSTEONECROSIS OF JAW [None]
  - SUBCUTANEOUS ABSCESS [None]
  - TOOTH DISORDER [None]
  - TOOTH ABSCESS [None]
  - OFF LABEL USE [None]
  - ABSCESS JAW [None]
  - TINEA INFECTION [None]
  - POST PROCEDURAL FISTULA [None]
  - SINUS DISORDER [None]
  - GINGIVAL INFECTION [None]
  - CELLULITIS [None]
  - ABSCESS ORAL [None]
  - ARTHRITIS [None]
  - DIARRHOEA [None]
  - INFECTION [None]
  - TOOTH INFECTION [None]
  - OSTEOMYELITIS [None]
  - BREAST CANCER [None]
  - NEURALGIA [None]
  - ORAL DISCOMFORT [None]
  - NAUSEA [None]
